FAERS Safety Report 4748724-0 (Version None)
Quarter: 2005Q3

REPORT INFORMATION
  Report Type: 
  Country: None (occurrence: None)
  Receive Date: 20050819
  Receipt Date: 20050808
  Transmission Date: 20060218
  Serious: Yes (Other)
  Sender: FDA-Public Use
  Company Number: DE-BRISTOL-MYERS SQUIBB COMPANY-13068085

PATIENT
  Age: 6 Decade
  Sex: Male

DRUGS (1)
  1. KARVEA [Suspect]

REACTIONS (1)
  - HEPATIC FAILURE [None]
